FAERS Safety Report 6521128-6 (Version None)
Quarter: 2009Q4

REPORT INFORMATION
  Report Type: 
  Country: None (occurrence: None)
  Receive Date: 20091222
  Receipt Date: 20091216
  Transmission Date: 20100525
  Serious: Yes (Hospitalization, Other)
  Sender: FDA-Public Use
  Company Number: 2009SP016944

PATIENT
  Age: 50 Year
  Sex: Female
  Weight: 62.5964 kg

DRUGS (2)
  1. NUVARING [Suspect]
     Indication: VULVOVAGINAL DRYNESS
     Dosage: QM;VAG
     Route: 067
     Dates: start: 20061101, end: 20070101
  2. SPORANOX [Concomitant]

REACTIONS (24)
  - ALOPECIA [None]
  - ARTHRALGIA [None]
  - CELLULITIS [None]
  - DEEP VEIN THROMBOSIS [None]
  - DEHYDRATION [None]
  - DERMATITIS [None]
  - ESCHERICHIA URINARY TRACT INFECTION [None]
  - FATIGUE [None]
  - HEADACHE [None]
  - HYPOTENSION [None]
  - INFECTION [None]
  - INTERVERTEBRAL DISC DISORDER [None]
  - LACUNAR INFARCTION [None]
  - PAIN [None]
  - PAIN IN EXTREMITY [None]
  - PHLEBITIS [None]
  - PLEURAL EFFUSION [None]
  - PULMONARY EMBOLISM [None]
  - PYELONEPHRITIS [None]
  - RADICULOPATHY [None]
  - SKIN PAPILLOMA [None]
  - TACHYPNOEA [None]
  - VARICOSE VEIN [None]
  - WEIGHT INCREASED [None]
